FAERS Safety Report 8773690 (Version 2)
Quarter: 2012Q4

REPORT INFORMATION
  Report Type: 
  Country: FR (occurrence: FR)
  Receive Date: 20120907
  Receipt Date: 20121004
  Transmission Date: 20130627
  Serious: Yes (Other)
  Sender: FDA-Public Use
  Company Number: FR-ROCHE-1114908

PATIENT
  Age: 58 Year
  Sex: Female

DRUGS (4)
  1. AVASTIN [Suspect]
     Indication: OVARIAN EPITHELIAL CANCER
     Route: 065
     Dates: start: 20120807
  2. CARBOPLATIN [Suspect]
     Indication: OVARIAN EPITHELIAL CANCER
     Route: 065
     Dates: start: 20120807
  3. GEMZAR [Suspect]
     Indication: OVARIAN EPITHELIAL CANCER
     Route: 065
     Dates: start: 20120807
  4. NISIS [Concomitant]

REACTIONS (3)
  - Haemolytic anaemia [Recovered/Resolved]
  - Leukopenia [Recovered/Resolved]
  - Thrombocytopenia [Recovered/Resolved]
